FAERS Safety Report 6785358-0 (Version None)
Quarter: 2010Q2

REPORT INFORMATION
  Report Type: 
  Country: None (occurrence: None)
  Receive Date: 20100623
  Receipt Date: 20100616
  Transmission Date: 20101027
  Serious: No
  Sender: FDA-Public Use
  Company Number: US-BIOGENIDEC-2010BI016386

PATIENT
  Sex: Female

DRUGS (6)
  1. TYSABRI [Suspect]
     Indication: MULTIPLE SCLEROSIS
     Route: 042
     Dates: start: 20070817, end: 20080722
  2. NEURONTIN [Concomitant]
     Indication: DRUG USE FOR UNKNOWN INDICATION
  3. CYMBALTA [Concomitant]
     Indication: DRUG USE FOR UNKNOWN INDICATION
  4. PROVIGIL [Concomitant]
     Indication: DRUG USE FOR UNKNOWN INDICATION
  5. HORMONE PILL [Concomitant]
     Indication: DRUG USE FOR UNKNOWN INDICATION
  6. MARINOL [Concomitant]

REACTIONS (1)
  - AMNESIA [None]
